FAERS Safety Report 9523930 (Version 1)
Quarter: 2013Q1

REPORT INFORMATION
  Report Type: Spontaneous
  Country: US (occurrence: None)
  Receive Date: 20130305
  Receipt Date: 20130305
  Transmission Date: 20140127
  Serious: Yes (Other)
  Sender: FDA-Public Use
  Company Number: 163-21880-12070172

PATIENT
  Age: 70 Year
  Sex: Female
  Weight: 57.15 kg

DRUGS (14)
  1. REVLIMID [Suspect]
     Indication: PLASMA CELL MYELOMA
     Dosage: 10 MG, 1 IN 1 D, PO
     Route: 048
     Dates: start: 201205, end: 20120621
  2. OMEPRAZOLE (OMEPROZOLE) (UNKNOWN) [Concomitant]
  3. OXYCODONE CR (OXYCODONE) (UNKNOWN) [Concomitant]
  4. ACYCLOVIR (ACICLOVIR) (UNKNOWN) [Concomitant]
  5. OXYCODONE/ APAP (OXYCODONE/APAP) (UNKNOWN) [Concomitant]
  6. SULFAMETHOXAZOLE/TRIMETHOPRIM DS (BACTRIM) (UNKNOWN)? [Concomitant]
  7. GABAPENTIN (GABAPENTIN) (UNKNOWN) (GABAPENTIN) [Concomitant]
  8. ASPIRIN (ACETYLSALICYLIC ACID) (UNKNOWN) (ACETYLSALICYLIC ACID) [Concomitant]
  9. POTASSIUM CHLORIDE (POTASSIUM CHLORIDE) (UNKNOWN) [Concomitant]
  10. OXYCONTIN (OXYCODONE HYDROCHLORIDE) (UNKNOWN) [Concomitant]
  11. ZOMETA (ZOLEDRONIC ACID) (UNKNOWN) [Concomitant]
  12. VITAMIN B12 (CYANOCOBALAMIN) (UNKNOWN) [Concomitant]
  13. BACTRIM (BACTRIM) (UNKNOWN) [Concomitant]
  14. LYRICA (PREGABALIN) (UNKNOWN) [Concomitant]

REACTIONS (1)
  - Pancytopenia [None]
